FAERS Safety Report 9665872 (Version 1)
Quarter: 2013Q4

REPORT INFORMATION
  Report Type: Spontaneous
  Country: US (occurrence: None)
  Receive Date: 20131101
  Receipt Date: 20131101
  Transmission Date: 20140711
  Serious: Yes (Other)
  Sender: FDA-Public Use
  Company Number: None

PATIENT
  Age: 34 Year
  Sex: Male
  Weight: 74.84 kg

DRUGS (1)
  1. PROPECIA 1MG MERCK [Suspect]
     Dosage: 1 PILL
     Route: 048

REACTIONS (4)
  - Sexual dysfunction [None]
  - Depression [None]
  - Personality change [None]
  - Mood altered [None]
